FAERS Safety Report 5007706-4 (Version None)
Quarter: 2006Q2

REPORT INFORMATION
  Report Type: 
  Country: None (occurrence: None)
  Receive Date: 20060522
  Receipt Date: 20060512
  Transmission Date: 20061013
  Serious: Yes (Hospitalization)
  Sender: FDA-Public Use
  Company Number: PHBS2006IL07305

PATIENT
  Age: 59 Year
  Sex: Female

DRUGS (4)
  1. METOPROLOL TARTRATE [Suspect]
     Indication: HYPERTENSION
  2. IKAPRESS [Suspect]
     Indication: HYPERTENSION
     Dosage: 3 G, ONCE/SINGLE
     Route: 048
  3. ENALAPRIL [Suspect]
     Dosage: 6 DF, ONCE/SINGLE
     Route: 048
  4. DISOTHIAZIDE [Concomitant]

REACTIONS (18)
  - AZOTAEMIA [None]
  - BLOOD CREATININE INCREASED [None]
  - BLOOD GLUCOSE INCREASED [None]
  - BLOOD PRESSURE DECREASED [None]
  - BLOOD UREA INCREASED [None]
  - CARDIOGENIC SHOCK [None]
  - CARDIOTOXICITY [None]
  - HYPERGLYCAEMIA [None]
  - INCORRECT DOSE ADMINISTERED [None]
  - INTENTIONAL OVERDOSE [None]
  - LETHARGY [None]
  - OLIGURIA [None]
  - PLEURAL EFFUSION [None]
  - PULMONARY CONGESTION [None]
  - RENAL FAILURE [None]
  - SEDATION [None]
  - SYNCOPE [None]
  - THERAPY NON-RESPONDER [None]
